FAERS Safety Report 23931634 (Version 1)
Quarter: 2024Q2

REPORT INFORMATION
  Report Type: Other
  Country: CN (occurrence: CN)
  Receive Date: 20240603
  Receipt Date: 20240603
  Transmission Date: 20240717
  Serious: Yes (Hospitalization, Other)
  Sender: FDA-Public Use
  Company Number: CN-CorePharma LLC-2157687

PATIENT

DRUGS (10)
  1. CAPTOPRIL [Suspect]
     Active Substance: CAPTOPRIL
     Indication: Product used for unknown indication
     Route: 048
     Dates: start: 2019
  2. SPIRONOLACTONE [Interacting]
     Active Substance: SPIRONOLACTONE
     Route: 048
  3. CEFOPERAZONE [Concomitant]
     Active Substance: CEFOPERAZONE
  4. ALBUTEROL [Concomitant]
     Active Substance: ALBUTEROL
     Route: 065
     Dates: start: 20191002
  5. AMBROXOL [Concomitant]
     Active Substance: AMBROXOL
     Route: 065
  6. PHOSPHOCREATINE [Concomitant]
     Active Substance: PHOSPHOCREATINE
     Route: 065
  7. SULBACTAM [Concomitant]
     Active Substance: SULBACTAM
     Route: 065
  8. DIGOXIN [Interacting]
     Active Substance: DIGOXIN
     Route: 048
     Dates: start: 20191002
  9. HYDROCHLOROTHIAZIDE [Interacting]
     Active Substance: HYDROCHLOROTHIAZIDE
     Route: 048
     Dates: start: 20191003
  10. FUROSEMIDE [Interacting]
     Active Substance: FUROSEMIDE
     Route: 048

REACTIONS (8)
  - Toxicity to various agents [Unknown]
  - Drug interaction [Unknown]
  - Electrocardiogram ST-T segment abnormal [Unknown]
  - Blood pressure decreased [Unknown]
  - Bundle branch block right [Unknown]
  - Heart rate irregular [Unknown]
  - Heart rate decreased [Unknown]
  - Atrioventricular block complete [Unknown]
